FAERS Safety Report 26211668 (Version 1)
Quarter: 2025Q4

REPORT INFORMATION
  Report Type: Spontaneous
  Country: EU (occurrence: EU)
  Receive Date: 20251230
  Receipt Date: 20251230
  Transmission Date: 20260118
  Serious: Yes (Hospitalization)
  Sender: ALEXION PHARMACEUTICALS
  Company Number: None

PATIENT
  Age: 28 Year
  Sex: Female

DRUGS (1)
  1. SAPHNELO [Suspect]
     Active Substance: ANIFROLUMAB-FNIA
     Dosage: 1 DOSAGE FORM, QMONTH
     Dates: start: 202504

REACTIONS (6)
  - Henoch-Schonlein purpura [Recovering/Resolving]
  - Purpura [Recovering/Resolving]
  - Nodular rash [Recovering/Resolving]
  - Rash vesicular [Recovering/Resolving]
  - Periorbital oedema [Recovering/Resolving]
  - Conjunctival oedema [Recovering/Resolving]

NARRATIVE: CASE EVENT DATE: 20250526
